FAERS Safety Report 10551162 (Version 1)
Quarter: 2014Q4

REPORT INFORMATION
  Report Type: Spontaneous
  Country: DK (occurrence: DK)
  Receive Date: 20141029
  Receipt Date: 20141029
  Transmission Date: 20150529
  Serious: Yes (Hospitalization)
  Sender: FDA-Public Use
  Company Number: DK-ROCHE-1470704

PATIENT
  Age: 77 Year
  Sex: Female

DRUGS (3)
  1. MOTILIUM [Concomitant]
     Active Substance: DOMPERIDONE
     Indication: NAUSEA
     Route: 065
  2. PINEX (DENMARK) [Concomitant]
     Indication: PAIN
     Route: 065
  3. MABTHERA [Suspect]
     Active Substance: RITUXIMAB
     Indication: MANTLE CELL LYMPHOMA
     Dosage: STYRKE: 500 MG
     Route: 065
     Dates: start: 201206, end: 201402

REACTIONS (7)
  - Pyrexia [Recovered/Resolved]
  - Hepatomegaly [Recovering/Resolving]
  - Rash [Recovering/Resolving]
  - Bronchopulmonary aspergillosis [Recovering/Resolving]
  - Bacterial infection [Recovering/Resolving]
  - Pneumocystis jirovecii infection [Recovering/Resolving]
  - Hepatic enzyme increased [Recovering/Resolving]

NARRATIVE: CASE EVENT DATE: 201405
